FAERS Safety Report 11802179 (Version 2)
Quarter: 2015Q4

REPORT INFORMATION
  Report Type: Report from Study
  Country: KR (occurrence: KR)
  Receive Date: 20151204
  Receipt Date: 20151216
  Transmission Date: 20160305
  Serious: Yes (Hospitalization)
  Sender: FDA-Public Use
  Company Number: KR-TEVA-611660ISR

PATIENT
  Age: 50 Year
  Sex: Female
  Weight: 51 kg

DRUGS (19)
  1. DEXAMETHASONE. [Concomitant]
     Active Substance: DEXAMETHASONE
     Indication: PREMEDICATION
     Dosage: 10 MILLIGRAM DAILY; EVERY PACLITAXEL AND AC CHEMOTHERAPY
     Route: 042
     Dates: start: 20150714
  2. PACLITAXEL. [Suspect]
     Active Substance: PACLITAXEL
     Indication: TRIPLE NEGATIVE BREAST CANCER
     Dosage: 80 MG/M2 DAILY; OL PHASE, CHEMOTHERAPY SEGMENT 1
     Route: 042
     Dates: start: 20150714, end: 20151013
  3. CALTEO [Concomitant]
     Indication: MINERAL SUPPLEMENTATION
     Dosage: 2 DOSAGE FORMS DAILY;
     Route: 048
     Dates: start: 20151013
  4. EMEND [Concomitant]
     Active Substance: APREPITANT
     Dosage: 80 MILLIGRAM DAILY; FOR 2 DAYS AFTER FROM NEXT DAY EVERY CHEMOTHERAPY
     Route: 048
     Dates: start: 20150805
  5. NESP [Concomitant]
     Active Substance: DARBEPOETIN ALFA
     Indication: ANAEMIA
     Dosage: 360 MICROGRAM DAILY;
     Route: 058
     Dates: start: 20151022
  6. ABT-888 [Suspect]
     Active Substance: VELIPARIB
     Indication: TRIPLE NEGATIVE BREAST CANCER
     Dosage: DB PHASE, CHEMOTHERAPY SEGMENT 1
     Route: 048
     Dates: start: 20150714, end: 20151021
  7. EMEND [Concomitant]
     Active Substance: APREPITANT
     Indication: PROPHYLAXIS OF NAUSEA AND VOMITING
     Dosage: 125 MILLIGRAM DAILY; EVERY CARBOPLATIN AND AC CHEMOTHERAPY
     Route: 048
     Dates: start: 20150804
  8. URSA [Concomitant]
     Indication: PROPHYLAXIS
     Dosage: 100 MILLIGRAM DAILY;
     Route: 048
     Dates: start: 20150924
  9. CARBOPLATIN. [Suspect]
     Active Substance: CARBOPLATIN
     Indication: TRIPLE NEGATIVE BREAST CANCER
     Dosage: DB PHASE, CHEMOTHERAPY SEGMENT 1
     Route: 042
     Dates: start: 20150714, end: 20150925
  10. CENTRUM [Concomitant]
     Active Substance: VITAMINS
     Indication: VITAMIN SUPPLEMENTATION
     Route: 048
     Dates: start: 20151013
  11. GADIN [Concomitant]
     Indication: PREMEDICATION
     Dosage: 50 MILLIGRAM DAILY; EVERY PACLITAXEL AND AC CHEMOTHERAPY
     Route: 042
     Dates: start: 20150714
  12. LEGALON [Concomitant]
     Active Substance: MILK THISTLE
     Indication: PROPHYLAXIS
     Dosage: 420 MILLIGRAM DAILY;
     Route: 048
     Dates: start: 20150924
  13. DOXORUBICIN [Suspect]
     Active Substance: DOXORUBICIN
     Indication: TRIPLE NEGATIVE BREAST CANCER
     Dosage: 60 MG/M2 DAILY; OL PHASE, CHEMOTHERAPY SEGMENT 2
     Route: 042
     Dates: start: 20151022
  14. CYCLOPHOSPHAMIDE. [Suspect]
     Active Substance: CYCLOPHOSPHAMIDE
     Indication: TRIPLE NEGATIVE BREAST CANCER
     Dosage: 600 MG/M2 DAILY; OL PHASE,CHEMOTHERAPY SEGMENT 2
     Route: 042
     Dates: start: 20151022
  15. ALOXI [Concomitant]
     Active Substance: PALONOSETRON HYDROCHLORIDE
     Indication: PREMEDICATION
     Dosage: .25 MILLIGRAM DAILY; EVERY CARBOPLATIN AND AC CHEMOTHERAPY
     Route: 042
     Dates: start: 20150714
  16. CHLORPHENIRAMINE. [Concomitant]
     Active Substance: CHLORPHENIRAMINE
     Indication: PREMEDICATION
     Dosage: 4 MILLIGRAM DAILY; EVERY PACLITAXEL AND AC CHEMOTHERAPY
     Route: 042
     Dates: start: 20150714
  17. GASMOTIN POWDER [Concomitant]
     Indication: PROPHYLAXIS
     Route: 048
     Dates: start: 20151013, end: 20151030
  18. ALBIS D(ALBIS) [Concomitant]
     Indication: PROPHYLAXIS
     Dosage: 2 DOSAGE FORMS DAILY;
     Route: 048
     Dates: start: 20151013, end: 20151030
  19. DEXAMETHASONE. [Concomitant]
     Active Substance: DEXAMETHASONE
     Indication: PROPHYLAXIS
     Dosage: 4 MILLIGRAM DAILY; FROM PREVIOUS DAY TO NEXT DAY EVERY CHEMOTHERAPY
     Route: 048
     Dates: start: 20150803, end: 20151022

REACTIONS (1)
  - Hyponatraemia [Unknown]

NARRATIVE: CASE EVENT DATE: 20151023
